FAERS Safety Report 22654555 (Version 1)
Quarter: 2023Q2

REPORT INFORMATION
  Report Type: Spontaneous
  Country: IT (occurrence: IT)
  Receive Date: 20230629
  Receipt Date: 20230629
  Transmission Date: 20230722
  Serious: Yes (Hospitalization, Other)
  Sender: FDA-Public Use
  Company Number: None

PATIENT
  Age: 54 Year
  Sex: Male
  Weight: 71 kg

DRUGS (4)
  1. METRONIDAZOLE [Suspect]
     Active Substance: METRONIDAZOLE
     Indication: Inflammatory bowel disease
     Dosage: DOSAGE TEXT : 1G
     Route: 042
     Dates: start: 20230612, end: 20230613
  2. ACETAMINOPHEN [Suspect]
     Active Substance: ACETAMINOPHEN
     Dosage: DOSAGE TEXT: 1 G
     Route: 042
     Dates: start: 20230612, end: 20230612
  3. CIPROFLOXACIN [Suspect]
     Active Substance: CIPROFLOXACIN
     Indication: Inflammatory bowel disease
     Dosage: DOSAGE TEXT: 200 MILLIGRAMS (MG)
     Route: 042
     Dates: start: 20230612, end: 20230612
  4. TRANEXAMIC ACID [Concomitant]
     Active Substance: TRANEXAMIC ACID
     Dosage: DOSAGE TEXT:1 G
     Route: 042
     Dates: start: 20230612, end: 20230612

REACTIONS (3)
  - Autoimmune disorder [Recovering/Resolving]
  - Skin lesion [Recovering/Resolving]
  - Henoch-Schonlein purpura [Recovering/Resolving]

NARRATIVE: CASE EVENT DATE: 20230613
